FAERS Safety Report 14219420 (Version 1)
Quarter: 2017Q4

REPORT INFORMATION
  Report Type: Spontaneous
  Country: US (occurrence: US)
  Receive Date: 20171123
  Receipt Date: 20171123
  Transmission Date: 20180321
  Serious: No
  Sender: FDA-Public Use
  Company Number: US-JNJFOC-20171004591

PATIENT
  Sex: Female

DRUGS (1)
  1. FENTANYL. [Suspect]
     Active Substance: FENTANYL
     Indication: PRODUCT USED FOR UNKNOWN INDICATION
     Dosage: 12 .5 MCG/HR PLUS 25 MCG/HR PATCH
     Route: 062

REACTIONS (4)
  - Adverse event [Unknown]
  - Underdose [Unknown]
  - Wrong technique in product usage process [Unknown]
  - Product adhesion issue [Unknown]
